FAERS Safety Report 17715433 (Version 2)
Quarter: 2020Q2

REPORT INFORMATION
  Report Type: Spontaneous
  Country: CO (occurrence: CO)
  Receive Date: 20200427
  Receipt Date: 20200505
  Transmission Date: 20200714
  Serious: Yes (Congenital Anomaly)
  Sender: FDA-Public Use
  Company Number: CO-BIOMARINAP-CO-2020-129847

PATIENT
  Age: 4 Year
  Sex: Female
  Weight: 12 kg

DRUGS (1)
  1. VIMIZIM [Suspect]
     Active Substance: ELOSULFASE ALFA
     Indication: MUCOPOLYSACCHARIDOSIS IV
     Dosage: 2 MILLIGRAM/KILOGRAM
     Route: 042
     Dates: start: 2017

REACTIONS (4)
  - Talipes [Recovered/Resolved]
  - Knee deformity [Unknown]
  - Mobility decreased [Recovering/Resolving]
  - Gait disturbance [Recovering/Resolving]
